FAERS Safety Report 7042575-2 (Version None)
Quarter: 2010Q4

REPORT INFORMATION
  Report Type: 
  Country: None (occurrence: None)
  Receive Date: 20101013
  Receipt Date: 20101005
  Transmission Date: 20110411
  Serious: Yes (Congenital Anomaly)
  Sender: FDA-Public Use
  Company Number: GXKR2010GB11255

PATIENT

DRUGS (3)
  1. MIRTAZAPINE (NGX) [Suspect]
     Dosage: MATERNAL DOSE: 45 MG
     Route: 064
  2. SEROQUEL [Suspect]
     Dosage: MATERNAL DOSE: 250 MG
     Route: 064
  3. TRAMADOL [Concomitant]
     Route: 064

REACTIONS (4)
  - DRUG EXPOSURE DURING PREGNANCY [None]
  - FIBULA AGENESIS [None]
  - LIMB REDUCTION DEFECT [None]
  - TALIPES [None]
